FAERS Safety Report 17939281 (Version 6)
Quarter: 2020Q3

REPORT INFORMATION
  Report Type: Spontaneous
  Country: US (occurrence: US)
  Receive Date: 20200624
  Receipt Date: 20200710
  Transmission Date: 20201103
  Serious: Yes (Life-Threatening, Other)
  Sender: FDA-Public Use
  Company Number: US-PFIZER INC-2020237469

PATIENT
  Age: 52 Year
  Sex: Female

DRUGS (4)
  1. NIFEDIPINE. [Suspect]
     Active Substance: NIFEDIPINE
     Indication: HYPERTENSIVE CRISIS
     Dosage: UNK, AS NEEDED
     Route: 048
  2. NIFEDIPINE. [Suspect]
     Active Substance: NIFEDIPINE
     Indication: HYPERTENSION
     Dosage: UNK (INCREASED)
     Route: 048
  3. METOPROLOL. [Suspect]
     Active Substance: METOPROLOL
     Indication: HYPERTENSIVE CRISIS
     Dosage: UNK, AS NEEDED
     Route: 048
  4. LABETALOL HYDROCHLORIDE. [Suspect]
     Active Substance: LABETALOL HYDROCHLORIDE
     Indication: HYPERTENSIVE CRISIS
     Dosage: UNK, AS NEEDED
     Route: 042

REACTIONS (2)
  - BRASH syndrome [Recovering/Resolving]
  - Cardiac arrest [Recovered/Resolved]
